FAERS Safety Report 6184709-8 (Version None)
Quarter: 2009Q2

REPORT INFORMATION
  Report Type: 
  Country: None (occurrence: None)
  Receive Date: 20090508
  Receipt Date: 20090428
  Transmission Date: 20091009
  Serious: Yes (Other)
  Sender: FDA-Public Use
  Company Number: US-PFIZER INC-2009196426

PATIENT
  Sex: Male
  Weight: 65.77 kg

DRUGS (2)
  1. VIAGRA [Suspect]
     Indication: ERECTILE DYSFUNCTION
     Dosage: 25 MG, AS NEEDED
  2. VITAMINS NOS [Concomitant]

REACTIONS (1)
  - LOSS OF CONSCIOUSNESS [None]
